FAERS Safety Report 6697046-X (Version None)
Quarter: 2010Q2

REPORT INFORMATION
  Report Type: 
  Country: None (occurrence: None)
  Receive Date: 20100421
  Receipt Date: 20100409
  Transmission Date: 20101027
  Serious: Yes (Hospitalization)
  Sender: FDA-Public Use
  Company Number: GRP10000007

PATIENT
  Age: 70 Year
  Sex: Female
  Weight: 45 kg

DRUGS (15)
  1. ACTONEL [Suspect]
     Indication: OSTEOPOROSIS
     Dosage: 35 MG, 1 /WEEK, ORAL
     Route: 048
     Dates: start: 20081201
  2. FENTANYL [Suspect]
     Indication: PAIN
     Dosage: 50 UG, 3 /DAY, TRANSDERMAL
     Route: 062
     Dates: start: 20090601, end: 20090727
  3. RESTEX (BENSERAZIDE HYDROCHLORIDE, LEVODOPA) TABLET, 100MG [Suspect]
     Indication: RESTLESS LEGS SYNDROME
     Dosage: ORAL
     Route: 048
     Dates: start: 20060101
  4. CARVEDILOL [Suspect]
     Indication: HYPERTENSION
     Dosage: ORAL
     Route: 048
     Dates: start: 20060101
  5. CANDESARTAN CILEXETIL [Suspect]
     Indication: HYPERTENSION
     Dosage: ORAL
     Route: 048
     Dates: start: 20070101
  6. NOVONORM (REPAGLINIDE) TABLET, 2MG [Suspect]
     Indication: TYPE 2 DIABETES MELLITUS
     Dosage: ORAL
     Route: 048
     Dates: start: 20070101
  7. SIMVASTATIN [Suspect]
     Indication: DYSLIPIDAEMIA
     Dosage: ORAL
     Route: 048
     Dates: start: 20050101
  8. OMBERZOL (OMEPRAZOLE) [Concomitant]
  9. MIMPARA /01735301/ (CINACALCET) TABLET [Concomitant]
  10. METAMIZOLE (METAMIZOLE) [Concomitant]
  11. MCP 1A PHARMA (METOCLOPRAMIDE HYDROCHLORIDE) [Concomitant]
  12. DIGITOXIN TAB [Concomitant]
  13. DREISAVIT /00844801/ (ASCORBIC ACID, CALCIUM PANTOTHENATE, FOLIC ACID, [Concomitant]
  14. FORENOL /00845801/ (NIMESULIDE) CHEWABLE TABLET [Concomitant]
  15. ASS AL (ACETYLSALICYLIC ACID) [Concomitant]

REACTIONS (13)
  - ALANINE AMINOTRANSFERASE INCREASED [None]
  - ASPARTATE AMINOTRANSFERASE INCREASED [None]
  - BLOOD BILIRUBIN INCREASED [None]
  - BLOOD CALCIUM INCREASED [None]
  - BLOOD LACTATE DEHYDROGENASE INCREASED [None]
  - BLOOD POTASSIUM INCREASED [None]
  - DIALYSIS [None]
  - GAMMA-GLUTAMYLTRANSFERASE INCREASED [None]
  - OVERDOSE [None]
  - POTENTIATING DRUG INTERACTION [None]
  - SOMNOLENCE [None]
  - TRANSAMINASES INCREASED [None]
  - VIRAL INFECTION [None]
